FAERS Safety Report 8473107 (Version 2)
Quarter: 2013Q2

REPORT INFORMATION
  Report Type: Spontaneous
  Country: US (occurrence: None)
  Receive Date: 20120305
  Receipt Date: 20120507
  Transmission Date: 20140414
  Serious: Yes (Other)
  Sender: FDA-Public Use
  Company Number: 1000026184

PATIENT
  Age: 66 Year
  Sex: Female

DRUGS (20)
  1. DALIRESP [Suspect]
     Indication: CHRONIC OBSTRUCTIVE PULMONARY DISEASE
     Route: 048
     Dates: start: 20111207
  2. CARDIZEM [Concomitant]
  3. DIOVAN [Concomitant]
  4. NEXIUM [Concomitant]
  5. CARAFATE (SUCRALFATE) (SUCRALFATE) [Concomitant]
  6. ALLOPURINOL [Concomitant]
  7. WELCHOL [Concomitant]
  8. PREMARIN (ESTROGENS CONJUGATED) (ESTROGENS CONJUGATED) [Concomitant]
  9. LASIX [Concomitant]
  10. LAMICTAL [Concomitant]
  11. SEROQUEL (QUETIAPINE FUMARATE) (QUETIAPINE FUMARATE) [Concomitant]
  12. LITHIUM CARBONATE [Concomitant]
  13. ATROVENT (IPRATROPIUM BROMIDE) (IPRATROPIUM BROMIDE) [Concomitant]
  14. FLOVENT (FLUTICASONE PROPIONATE) (FLUTICASONE PROPIONATE) [Concomitant]
  15. PROAIR (FLUTICASONE PROPIONATE) (FLUTICASONE PROPIONATE) [Concomitant]
  16. ALBUTEROL (ALBUTEROL) (ALBUTEROL) [Concomitant]
  17. DIFLUCAN (FLUCONAZOLE) (FLUCONAZOLE) [Concomitant]
  18. NASONEX (MOMETASONE FUROATE) (MOMETASONE FUROATE) [Concomitant]
  19. DIAZEPAM [Concomitant]
  20. LOMOTIL (LOMOTIL) (LOMOTIL) [Concomitant]

REACTIONS (2)
  - CHEST PAIN [None]
  - Chronic obstructive pulmonary disease [None]
